FAERS Safety Report 4807233-0 (Version None)
Quarter: 2005Q4

REPORT INFORMATION
  Report Type: 
  Country: None (occurrence: None)
  Receive Date: 20051024
  Receipt Date: 20051018
  Transmission Date: 20060501
  Serious: Yes (Life-Threatening)
  Sender: FDA-Public Use
  Company Number: 2005AP05448

PATIENT
  Age: 26518 Day
  Sex: Female

DRUGS (5)
  1. FELODIPINE [Suspect]
     Dates: end: 20010127
  2. CYANOCOBALAMIN [Suspect]
     Dates: end: 20010127
  3. DOXEPIN HYDROCHLORIDE [Suspect]
     Dates: end: 20010127
  4. METFORMIN HYDROCHLORIDE [Suspect]
     Indication: DIABETES MELLITUS
     Route: 048
     Dates: end: 20010127
  5. RANITIDINE [Suspect]
     Route: 048

REACTIONS (3)
  - HYPOKALAEMIA [None]
  - RENAL FAILURE ACUTE [None]
  - VOMITING [None]
